FAERS Safety Report 4643652-3 (Version None)
Quarter: 2005Q2

REPORT INFORMATION
  Report Type: 
  Country: None (occurrence: None)
  Receive Date: 20050425
  Receipt Date: 20050321
  Transmission Date: 20051028
  Serious: Yes (Other)
  Sender: FDA-Public Use
  Company Number: PHNU2005DE01429

PATIENT
  Age: 32 Year
  Sex: Female
  Weight: 80 kg

DRUGS (3)
  1. LEPONEX / CLOZARIL (CLOZAPINE) [Suspect]
     Indication: SCHIZOPHRENIA
     Dosage: UP TO 100MG/DAY
     Route: 048
     Dates: start: 20011001
  2. NEBILET [Suspect]
     Indication: TACHYCARDIA
     Dosage: 0.5 MG, QD
     Route: 048
     Dates: start: 20050101, end: 20050201
  3. ABILIFY [Suspect]
     Indication: SCHIZOPHRENIA
     Dosage: 25 MG, QD
     Route: 048
     Dates: start: 20041001

REACTIONS (3)
  - DRUG INTERACTION [None]
  - DYSPNOEA [None]
  - TACHYCARDIA [None]
